FAERS Safety Report 16262337 (Version 2)
Quarter: 2019Q2

REPORT INFORMATION
  Report Type: Spontaneous
  Country: JP (occurrence: JP)
  Receive Date: 20190501
  Receipt Date: 20190521
  Transmission Date: 20190711
  Serious: Yes (Other)
  Sender: FDA-Public Use
  Company Number: JP-009507513-1904JPN002956J

PATIENT

DRUGS (1)
  1. KEYTRUDA [Suspect]
     Active Substance: PEMBROLIZUMAB
     Indication: TRANSITIONAL CELL CARCINOMA
     Dosage: UNK
     Route: 041

REACTIONS (12)
  - Platelet count decreased [Unknown]
  - Diarrhoea [Unknown]
  - Interstitial lung disease [Unknown]
  - Decreased appetite [Unknown]
  - Infusion related reaction [Unknown]
  - Haematochezia [Unknown]
  - Hepatic function abnormal [Unknown]
  - Thyroiditis [Unknown]
  - Rash [Unknown]
  - Blood creatine phosphokinase increased [Unknown]
  - Malaise [Unknown]
  - Hypothyroidism [Unknown]
